FAERS Safety Report 18230584 (Version 1)
Quarter: 2020Q3

REPORT INFORMATION
  Report Type: Other
  Country: US (occurrence: US)
  Receive Date: 20200903
  Receipt Date: 20200903
  Transmission Date: 20201103
  Serious: Yes (Other)
  Sender: FDA-Public Use
  Company Number: US-ROCHE-2668491

PATIENT
  Sex: Female

DRUGS (2)
  1. OCREVUS [Suspect]
     Active Substance: OCRELIZUMAB
     Indication: MULTIPLE SCLEROSIS
     Route: 065
  2. OCREVUS [Suspect]
     Active Substance: OCRELIZUMAB
     Dosage: INFUSE 300 MG INTRAVENOUSLY ON DAYS 1 AND DAY 15, THEN INFUSE 600 MG INTRAVENOUSLY EVERY 6 MONTHS
     Route: 042

REACTIONS (2)
  - Illness [Unknown]
  - Multiple sclerosis relapse [Unknown]
